APPROVED DRUG PRODUCT: LIQREV
Active Ingredient: SILDENAFIL CITRATE
Strength: EQ 10MG BASE/ML
Dosage Form/Route: SUSPENSION;ORAL
Application: N214952 | Product #001
Applicant: CMP DEVELOPMENT LLC
Approved: Apr 28, 2023 | RLD: Yes | RS: No | Type: DISCN

PATENTS:
Patent 11337979 | Expires: Dec 24, 2038
Patent 11464778 | Expires: Dec 24, 2038
Patent 12186321 | Expires: Dec 24, 2038
Patent 11759468 | Expires: Dec 24, 2038
Patent 12005062 | Expires: Dec 24, 2038